FAERS Safety Report 21637249 (Version 1)
Quarter: 2022Q4

REPORT INFORMATION
  Report Type: Spontaneous
  Country: CO (occurrence: CO)
  Receive Date: 20221124
  Receipt Date: 20221124
  Transmission Date: 20230112
  Serious: Yes (Hospitalization)
  Sender: FDA-Public Use
  Company Number: CO-ORG100014127-2022001338

PATIENT
  Age: 44 Year
  Sex: Female
  Weight: 83 kg

DRUGS (6)
  1. LYSODREN [Suspect]
     Active Substance: MITOTANE
     Indication: Adrenocortical carcinoma
     Route: 048
     Dates: start: 20220201
  2. PREDNISOLONE [Concomitant]
     Active Substance: PREDNISOLONE
     Indication: Product used for unknown indication
  3. SPIRONOLACTONE [Concomitant]
     Active Substance: SPIRONOLACTONE
     Indication: Product used for unknown indication
  4. Carvelidol [Concomitant]
     Indication: Product used for unknown indication
  5. ENOXAPARIN [Concomitant]
     Active Substance: ENOXAPARIN
     Indication: Product used for unknown indication
  6. PREGABALIN [Concomitant]
     Active Substance: PREGABALIN
     Indication: Product used for unknown indication

REACTIONS (1)
  - Dyspnoea [Unknown]

NARRATIVE: CASE EVENT DATE: 20221115
